FAERS Safety Report 11431056 (Version 1)
Quarter: 2015Q3

REPORT INFORMATION
  Report Type: Spontaneous
  Country: GB (occurrence: GB)
  Receive Date: 20150828
  Receipt Date: 20150828
  Transmission Date: 20151125
  Serious: Yes (Death, Other)
  Sender: FDA-Public Use
  Company Number: PHHY2015GB101879

PATIENT
  Age: 9 Year
  Sex: Male

DRUGS (1)
  1. MEROPENEM. [Suspect]
     Active Substance: MEROPENEM
     Indication: PRODUCT USED FOR UNKNOWN INDICATION
     Route: 065

REACTIONS (4)
  - Pulmonary haemorrhage [Fatal]
  - Graft versus host disease [Unknown]
  - Drug reaction with eosinophilia and systemic symptoms [Unknown]
  - Encephalitis viral [Unknown]
